FAERS Safety Report 8770886 (Version 1)
Quarter: 2012Q4

REPORT INFORMATION
  Report Type: 
  Country: US (occurrence: US)
  Receive Date: 20120906
  Receipt Date: 20120906
  Transmission Date: 20130627
  Serious: Yes (Hospitalization)
  Sender: FDA-Public Use
  Company Number: US-BAYER-2012-090714

PATIENT
  Age: 34 Year
  Sex: Female

DRUGS (6)
  1. YAZ [Suspect]
  2. OMEPRAZOLE [Concomitant]
     Dosage: 40 mg, daily
     Dates: start: 20110130
  3. SINGULAIR [Concomitant]
     Dosage: 10 mg, daily
     Dates: start: 20110130
  4. ASPIRIN [Concomitant]
     Dosage: 81 mg, daily
     Dates: start: 20110130
  5. ACYCLOVIR [ACICLOVIR] [Concomitant]
     Dosage: Daily
     Dates: start: 20110130
  6. ALLERGY SHOTS [Concomitant]
     Dosage: Every Friday
     Dates: start: 20110130

REACTIONS (1)
  - Portal vein thrombosis [Recovered/Resolved]
